FAERS Safety Report 10064349 (Version 1)
Quarter: 2014Q2

REPORT INFORMATION
  Report Type: Spontaneous
  Country: US (occurrence: None)
  Receive Date: 20140407
  Receipt Date: 20140407
  Transmission Date: 20141212
  Serious: Yes (Other)
  Sender: FDA-Public Use
  Company Number: None

PATIENT
  Age: 51 Year
  Sex: Female
  Weight: 88.45 kg

DRUGS (1)
  1. MINOCYCLINE [Suspect]
     Indication: ROSACEA
     Dosage: 1 CAP
     Route: 048
     Dates: start: 20131201, end: 20140317

REACTIONS (4)
  - Dyspnoea [None]
  - Dyspnoea exertional [None]
  - Heart rate irregular [None]
  - Diarrhoea [None]
